FAERS Safety Report 4895408-4 (Version None)
Quarter: 2006Q1

REPORT INFORMATION
  Report Type: 
  Country: None (occurrence: None)
  Receive Date: 20060130
  Receipt Date: 20050629
  Transmission Date: 20060701
  Serious: No
  Sender: FDA-Public Use
  Company Number: US-GLAXOSMITHKLINE-A0565079A

PATIENT
  Sex: Male

DRUGS (5)
  1. COMBIVIR [Suspect]
     Indication: HIV INFECTION
     Route: 048
     Dates: start: 20050501
  2. RETROVIR [Suspect]
     Indication: HIV INFECTION
     Dosage: 100MG TWICE PER DAY
     Route: 048
     Dates: start: 20050501
  3. NORVIR [Concomitant]
     Dates: start: 20050601
  4. FUZEON [Concomitant]
  5. LEXIVA [Concomitant]

REACTIONS (1)
  - OVERDOSE [None]
